FAERS Safety Report 9719218 (Version 1)
Quarter: 2013Q4

REPORT INFORMATION
  Report Type: Spontaneous
  Country: US (occurrence: US)
  Receive Date: 20131127
  Receipt Date: 20131127
  Transmission Date: 20140711
  Serious: Yes (Hospitalization)
  Sender: FDA-Public Use
  Company Number: PHEH2013US024433

PATIENT
  Sex: Male

DRUGS (2)
  1. AFINITOR [Suspect]
     Indication: THYROID CANCER
     Dosage: 5 MG, QD
     Dates: start: 20130503, end: 20131008
  2. AFINITOR [Suspect]
     Indication: OFF LABEL USE
     Dosage: 10 MG, UNK
     Route: 048

REACTIONS (1)
  - Convulsion [Recovered/Resolved]
